FAERS Safety Report 8494894 (Version 2)
Quarter: 2014Q1

REPORT INFORMATION
  Report Type: Spontaneous
  Country: US (occurrence: None)
  Receive Date: 20120329
  Receipt Date: 20140107
  Transmission Date: 20141002
  Serious: Yes (Hospitalization)
  Sender: FDA-Public Use
  Company Number: 2012AP000761

PATIENT
  Age: 58 Year
  Sex: Female

DRUGS (5)
  1. SERTRALINE HYDROCHLORIDE [Suspect]
     Indication: BIPOLAR DISORDER
     Dosage: 50 MG;QD
  2. LAMOTRIGINE [Suspect]
     Indication: DEPRESSION
  3. ZIPRASIDONE HYDROCHLORIDE [Suspect]
     Indication: BIPOLAR DISORDER
     Dosage: 40 MG;BID, 60 MG, 40 MG;BID
  4. ARIPIPRAZOLE [Concomitant]
  5. QUETIAPINE [Concomitant]

REACTIONS (11)
  - Parkinsonism [None]
  - Dyskinesia [None]
  - Rabbit syndrome [None]
  - Drug withdrawal syndrome [None]
  - Extrapyramidal disorder [None]
  - Drug ineffective [None]
  - Depression [None]
  - Bradykinesia [None]
  - Masked facies [None]
  - Gait disturbance [None]
  - Dyskinesia [None]
